FAERS Safety Report 15719765 (Version 1)
Quarter: 2018Q4

REPORT INFORMATION
  Report Type: Spontaneous
  Country: US (occurrence: US)
  Receive Date: 20181213
  Receipt Date: 20181213
  Transmission Date: 20190205
  Serious: Yes (Hospitalization)
  Sender: FDA-Public Use
  Company Number: US-ACTELION-A-NJ2018-183595

PATIENT
  Age: 55 Year
  Sex: Female
  Weight: 77.98 kg

DRUGS (2)
  1. UPTRAVI [Suspect]
     Active Substance: SELEXIPAG
     Indication: PULMONARY ARTERIAL HYPERTENSION
     Dosage: 200 MCG, BID
     Route: 048
  2. WARFARIN [Concomitant]
     Active Substance: WARFARIN

REACTIONS (5)
  - Pain in extremity [Unknown]
  - Chest pain [Unknown]
  - Product dose omission [Unknown]
  - Dyspnoea [Unknown]
  - Dialysis [Unknown]

NARRATIVE: CASE EVENT DATE: 20181128
